FAERS Safety Report 20576867 (Version 2)
Quarter: 2022Q1

REPORT INFORMATION
  Report Type: Spontaneous
  Country: BR (occurrence: BR)
  Receive Date: 20220310
  Receipt Date: 20220325
  Transmission Date: 20220423
  Serious: Yes (Death, Other)
  Sender: FDA-Public Use
  Company Number: BR-ASTELLAS-2022US008697

PATIENT
  Age: 87 Year
  Sex: Male

DRUGS (14)
  1. XTANDI [Suspect]
     Active Substance: ENZALUTAMIDE
     Indication: Prostate cancer
     Dosage: 160 MG, ONCE DAILY (AT 18.00)
     Route: 048
     Dates: start: 202111, end: 20211204
  2. PANTOPRAZOLE [Concomitant]
     Active Substance: PANTOPRAZOLE
     Indication: Product used for unknown indication
     Dosage: 20 MG, UNKNOWN FREQ. (IN THE MORNING, ON AN EMPTY STOMACH)
     Route: 048
  3. VENLAFAXINE HYDROCHLORIDE [Concomitant]
     Active Substance: VENLAFAXINE HYDROCHLORIDE
     Indication: Product used for unknown indication
     Dosage: 1 DF, UNKNOWN FREQ. (AFTER BREAKFAST)
     Route: 048
  4. KEPPRA [Concomitant]
     Active Substance: LEVETIRACETAM
     Indication: Product used for unknown indication
     Dosage: 250 MG, UNKNOWN FREQ. (AFTER BREAKFAST)
     Route: 048
  5. KEPPRA [Concomitant]
     Active Substance: LEVETIRACETAM
     Dosage: 250 MG, UNKNOWN FREQ. (AT 4 PM)
     Route: 048
  6. KEPPRA [Concomitant]
     Active Substance: LEVETIRACETAM
     Dosage: 250 MG, UNKNOWN FREQ. (18 HOURS)
     Route: 048
  7. Tylex [Concomitant]
     Indication: Product used for unknown indication
     Dosage: 1 DF, UNKNOWN FREQ. (AT 4 PM)
     Route: 048
  8. Tylex [Concomitant]
     Dosage: 1 DF, UNKNOWN FREQ. (AFTER BREAKFAST)
     Route: 048
  9. Tylex [Concomitant]
     Dosage: 30 MG, UNKNOWN FREQ.(18 HOURS)
     Route: 048
  10. OSCAL D [Concomitant]
     Active Substance: CALCIUM CARBONATE\CHOLECALCIFEROL
     Indication: Product used for unknown indication
     Dosage: UNK UNK, UNKNOWN FREQ. (ALONG WITH LUNCH)
     Route: 048
  11. THIAMINE HYDROCHLORIDE [Concomitant]
     Active Substance: THIAMINE HYDROCHLORIDE
     Indication: Product used for unknown indication
     Dosage: UNK UNK, UNKNOWN FREQ. (ALONG WITH LUNCH)
     Route: 048
  12. LIPITOR [Concomitant]
     Active Substance: ATORVASTATIN CALCIUM
     Indication: Product used for unknown indication
     Dosage: 1 DF, UNKNOWN FREQ. (18 HOURS)
     Route: 048
  13. EZETIMIBE [Concomitant]
     Active Substance: EZETIMIBE
     Indication: Product used for unknown indication
     Dosage: 1 DF, UNKNOWN FREQ. (18 HOURS)
     Route: 048
  14. ZYPREXA [Concomitant]
     Active Substance: OLANZAPINE
     Indication: Product used for unknown indication
     Dosage: 7.5 MG, UNKNOWN FREQ. (18 HOURS)
     Route: 048

REACTIONS (2)
  - Cerebrovascular accident [Fatal]
  - Malignant neoplasm progression [Fatal]

NARRATIVE: CASE EVENT DATE: 20211204
